FAERS Safety Report 8532897 (Version 3)
Quarter: 2013Q2

REPORT INFORMATION
  Report Type: Report from Study
  Country: MX (occurrence: MX)
  Receive Date: 20120427
  Receipt Date: 20130507
  Transmission Date: 20140414
  Serious: Yes (Other)
  Sender: FDA-Public Use
  Company Number: MX-AMGEN-MEXCT2012026087

PATIENT
  Age: 85 Year
  Sex: Female

DRUGS (5)
  1. DENOSUMAB [Suspect]
     Indication: OSTEOPOROSIS POSTMENOPAUSAL
     Dosage: 60 MG, Q6MO
     Route: 048
     Dates: start: 20050125
  2. ENALAPRIL [Concomitant]
     Dosage: 20 MG, QD
     Route: 048
     Dates: start: 20050125
  3. METOPROLOL [Concomitant]
     Dosage: 100 MG, BID
     Route: 048
     Dates: start: 20050125
  4. ASPIRIN [Concomitant]
     Dosage: 250 MG, QD
     Route: 048
     Dates: start: 20050125
  5. CHLORTHALIDONE [Concomitant]
     Dosage: 50 MG, QD
     Route: 048
     Dates: start: 20050125

REACTIONS (2)
  - Leukopenia [Not Recovered/Not Resolved]
  - Neutropenia [Not Recovered/Not Resolved]
